FAERS Safety Report 10867926 (Version 1)
Quarter: 2015Q1

REPORT INFORMATION
  Report Type: Spontaneous
  Country: US (occurrence: US)
  Receive Date: 20150225
  Receipt Date: 20150225
  Transmission Date: 20150721
  Serious: No
  Sender: FDA-Public Use
  Company Number: US-VIVUS-2014V1000644

PATIENT
  Age: 82 Year
  Sex: Male

DRUGS (2)
  1. STENDRA [Suspect]
     Active Substance: AVANAFIL
     Indication: ERECTILE DYSFUNCTION
     Dosage: 100 MG X1 DOSE
     Route: 048
  2. STENDRA [Suspect]
     Active Substance: AVANAFIL
     Dosage: 200 MG X1 DOSE
     Route: 048

REACTIONS (1)
  - Drug ineffective [Unknown]
